FAERS Safety Report 5255684-5 (Version None)
Quarter: 2007Q1

REPORT INFORMATION
  Report Type: 
  Country: None (occurrence: None)
  Receive Date: 20070305
  Receipt Date: 20070223
  Transmission Date: 20070707
  Serious: Yes (Hospitalization)
  Sender: FDA-Public Use
  Company Number: FR-PFIZER INC-2007002051

PATIENT
  Age: 76 Year
  Sex: Male

DRUGS (10)
  1. ALDACTONE [Suspect]
     Indication: HYPERTENSIVE CARDIOMYOPATHY
     Route: 048
  2. ZOXAN LP [Suspect]
     Indication: BENIGN NEOPLASM OF PROSTATE
     Dosage: TEXT:0.5 DF-FREQ:EVERY DAY
     Route: 048
  3. CANDESARTAN CILEXETIL [Suspect]
     Indication: HYPERTENSIVE CARDIOMYOPATHY
     Dosage: TEXT:1 DF-FREQ:INTERVAL: EVERY DAY
     Route: 048
  4. FUROSEMIDE [Suspect]
     Indication: HYPERTENSIVE CARDIOMYOPATHY
     Dosage: DAILY DOSE:60MG-FREQ:EVERY DAY
     Route: 048
  5. RILMENIDINE [Suspect]
     Indication: HYPERTENSIVE CARDIOMYOPATHY
     Route: 048
  6. POTASSIUM CHLORIDE [Concomitant]
     Route: 048
  7. ALLOPURINOL [Concomitant]
     Dosage: TEXT:1 DF
     Route: 048
  8. KARDEGIC [Concomitant]
     Route: 048
  9. OMEPRAZOLE [Concomitant]
     Route: 048
  10. STABLON [Concomitant]
     Route: 048

REACTIONS (1)
  - BLOOD PRESSURE DECREASED [None]
